FAERS Safety Report 8605254-3 (Version None)
Quarter: 2012Q3

REPORT INFORMATION
  Report Type: 
  Country: None (occurrence: None)
  Receive Date: 20120820
  Receipt Date: 20120814
  Transmission Date: 20120928
  Serious: Yes (Other)
  Sender: FDA-Public Use
  Company Number: US-BAYER-2012-084144

PATIENT
  Age: 85 Year
  Sex: Female
  Weight: 59 kg

DRUGS (10)
  1. LOSARTAN POTASSIUM [Concomitant]
  2. ASPIRIN [Suspect]
     Indication: ISCHAEMIC HEART DISEASE PROPHYLAXIS
     Dosage: 1 UNK, UNK
     Route: 048
  3. ALEVE (CAPLET) [Interacting]
     Indication: HEADACHE
     Dosage: 1 DF, ONCE
     Route: 048
     Dates: start: 20120814, end: 20120814
  4. ZOCOR [Concomitant]
  5. BISOPROLOL FUMARATE [Concomitant]
  6. CALCIUM CARBONATE [Concomitant]
  7. PREDNISONE TAB [Concomitant]
  8. SIMVASTATIN [Concomitant]
  9. SYNTHROID [Concomitant]
  10. MULTI-VITAMIN [Concomitant]

REACTIONS (1)
  - HAEMATOCHEZIA [None]
